FAERS Safety Report 5881061-X (Version None)
Quarter: 2008Q3

REPORT INFORMATION
  Report Type: 
  Country: None (occurrence: None)
  Receive Date: 20080912
  Receipt Date: 20080612
  Transmission Date: 20090109
  Serious: No
  Sender: FDA-Public Use
  Company Number: US-ABBOTT-08P-163-0458211-00

PATIENT
  Sex: Female
  Weight: 86.26 kg

DRUGS (4)
  1. HUMIRA [Suspect]
     Indication: RHEUMATOID ARTHRITIS
     Route: 058
     Dates: start: 20080101, end: 20080301
  2. PREDNISONE TAB [Concomitant]
     Indication: RHEUMATOID ARTHRITIS
     Route: 048
  3. MELOXICAM [Concomitant]
     Indication: PAIN
     Route: 048
     Dates: start: 20071201
  4. FOLIC ACID [Concomitant]
     Indication: VITAMIN SUPPLEMENTATION
     Route: 048
     Dates: start: 20071201

REACTIONS (4)
  - ARTHRALGIA [None]
  - JOINT SWELLING [None]
  - MOBILITY DECREASED [None]
  - PAIN [None]
